FAERS Safety Report 16935389 (Version 2)
Quarter: 2019Q4

REPORT INFORMATION
  Report Type: Spontaneous
  Country: US (occurrence: US)
  Receive Date: 20191018
  Receipt Date: 20191119
  Transmission Date: 20200122
  Serious: No
  Sender: FDA-Public Use
  Company Number: US-SA-2019SA282380

PATIENT
  Age: 59 Year
  Sex: Female

DRUGS (2)
  1. DUPIXENT [Suspect]
     Active Substance: DUPILUMAB
     Indication: DERMATITIS ATOPIC
     Dosage: 300 MG, QOW
     Route: 058
     Dates: start: 20190816
  2. OMEPRAZOLE. [Suspect]
     Active Substance: OMEPRAZOLE

REACTIONS (3)
  - Headache [Unknown]
  - Pyrexia [Unknown]
  - Fatigue [Unknown]
